FAERS Safety Report 24467609 (Version 1)
Quarter: 2024Q4

REPORT INFORMATION
  Report Type: Report from Study
  Country: US (occurrence: US)
  Receive Date: 20241018
  Receipt Date: 20241018
  Transmission Date: 20250115
  Serious: No
  Sender: ROCHE
  Company Number: US-ROCHE-3557815

PATIENT
  Age: 63 Year
  Sex: Female
  Weight: 134.72 kg

DRUGS (3)
  1. XOLAIR [Suspect]
     Active Substance: OMALIZUMAB
     Indication: Urticaria
     Route: 058
     Dates: end: 202402
  2. XOLAIR [Suspect]
     Active Substance: OMALIZUMAB
     Indication: Pruritus
  3. ASPIRIN [Concomitant]
     Active Substance: ASPIRIN

REACTIONS (2)
  - Off label use [Unknown]
  - No adverse event [Unknown]

NARRATIVE: CASE EVENT DATE: 20180101
